FAERS Safety Report 8141594-2 (Version None)
Quarter: 2012Q1

REPORT INFORMATION
  Report Type: 
  Country: None (occurrence: None)
  Receive Date: 20120103
  Receipt Date: 20111024
  Transmission Date: 20120608
  Serious: No
  Sender: FDA-Public Use
  Company Number: AE-2011-001448

PATIENT
  Age: 62 Year
  Sex: Male
  Weight: 79.3795 kg

DRUGS (7)
  1. NORVASC [Concomitant]
  2. IBUPROFEN (ADVIL) [Concomitant]
  3. ALLEGRA [Concomitant]
  4. PEGASYS [Concomitant]
  5. XANAX [Concomitant]
  6. INCIVEK [Suspect]
     Dosage: 2250 MG (750 MG,1 IN 8 HR), ORAL
     Route: 048
     Dates: start: 20110904
  7. RIBAVIRIN [Concomitant]

REACTIONS (1)
  - RASH GENERALISED [None]
